FAERS Safety Report 23525255 (Version 6)
Quarter: 2024Q3

REPORT INFORMATION
  Report Type: Report from Study
  Country: JP (occurrence: JP)
  Receive Date: 20240215
  Receipt Date: 20240908
  Transmission Date: 20241016
  Serious: Yes (Death, Hospitalization)
  Sender: ABBVIE
  Company Number: JP-ABBVIE-21K-087-4206908-00

PATIENT
  Age: 88 Year
  Sex: Male

DRUGS (4)
  1. RINVOQ [Suspect]
     Active Substance: UPADACITINIB
     Indication: Rheumatoid arthritis
     Dosage: FORM STRENGTH: 7.5 MILIGRAM
     Route: 048
     Dates: start: 20210125, end: 20210516
  2. PREDNISOLONE [Concomitant]
     Active Substance: PREDNISOLONE
     Indication: Rheumatoid arthritis
  3. FILGOTINIB MALEATE [Concomitant]
     Active Substance: FILGOTINIB MALEATE
     Indication: Product used for unknown indication
     Dates: start: 20210517, end: 20231113
  4. IGURATIMOD [Concomitant]
     Active Substance: IGURATIMOD
     Indication: Rheumatoid arthritis

REACTIONS (3)
  - Death [Fatal]
  - Cerebral haemorrhage [Unknown]
  - Therapeutic product effect incomplete [Unknown]

NARRATIVE: CASE EVENT DATE: 20230819
